FAERS Safety Report 4867076-9 (Version None)
Quarter: 2005Q4

REPORT INFORMATION
  Report Type: 
  Country: None (occurrence: None)
  Receive Date: 20051222
  Receipt Date: 20051213
  Transmission Date: 20060501
  Serious: Yes (Other)
  Sender: FDA-Public Use
  Company Number: 2005-12-0710

PATIENT
  Age: 31 Year
  Sex: Male

DRUGS (2)
  1. INTERFERON [Suspect]
     Indication: HEPATITIS C
     Dosage: 5 MU TIW
  2. RIBAVIRIN [Suspect]
     Indication: HEPATITIS C
     Dosage: 1 GRAM QD

REACTIONS (5)
  - ANTI-THYROID ANTIBODY POSITIVE [None]
  - CHEST PAIN [None]
  - CORONARY ARTERY OCCLUSION [None]
  - HYPERTHYROIDISM [None]
  - SINUS TACHYCARDIA [None]
